FAERS Safety Report 7040506-2 (Version None)
Quarter: 2010Q4

REPORT INFORMATION
  Report Type: 
  Country: None (occurrence: None)
  Receive Date: 20101008
  Receipt Date: 20101008
  Transmission Date: 20110411
  Serious: Yes (Life-Threatening, Disabling)
  Sender: FDA-Public Use
  Company Number: None

PATIENT
  Sex: Female
  Weight: 42.1845 kg

DRUGS (3)
  1. ZYRTEC [Suspect]
     Indication: HYPERSENSITIVITY
     Dosage: 100 (10MG) 1 EVERY 24/HRS
     Dates: start: 20100505
  2. ZYRTEC [Suspect]
     Indication: RASH
     Dosage: 100 (10MG) 1 EVERY 24/HRS
     Dates: start: 20100505
  3. ZYRTEC [Suspect]
     Dosage: 15 (10MG) 1 EVERY 24/HRS
     Dates: end: 20100825

REACTIONS (7)
  - ANXIETY [None]
  - CONDITION AGGRAVATED [None]
  - DYSPNOEA [None]
  - HEART RATE INCREASED [None]
  - HYPERSENSITIVITY [None]
  - MENTAL DISORDER [None]
  - UNEVALUABLE EVENT [None]
